FAERS Safety Report 7479017-9 (Version None)
Quarter: 2011Q2

REPORT INFORMATION
  Report Type: 
  Country: None (occurrence: None)
  Receive Date: 20110511
  Receipt Date: 20110511
  Transmission Date: 20111010
  Serious: Yes (Other)
  Sender: FDA-Public Use
  Company Number: None

PATIENT
  Age: 57 Year
  Sex: Female
  Weight: 66.6788 kg

DRUGS (1)
  1. SEROQUEL XR [Suspect]

REACTIONS (10)
  - MYALGIA [None]
  - BLOOD THYROID STIMULATING HORMONE INCREASED [None]
  - DRY EYE [None]
  - BLOOD TRIGLYCERIDES INCREASED [None]
  - JOINT STIFFNESS [None]
  - TENDON PAIN [None]
  - LOW DENSITY LIPOPROTEIN INCREASED [None]
  - VISUAL ACUITY REDUCED [None]
  - PAIN IN EXTREMITY [None]
  - BLOOD CHOLESTEROL INCREASED [None]
